FAERS Safety Report 18013245 (Version 1)
Quarter: 2020Q3

REPORT INFORMATION
  Report Type: Spontaneous
  Country: US (occurrence: US)
  Receive Date: 20200713
  Receipt Date: 20200713
  Transmission Date: 20201103
  Serious: No
  Sender: FDA-Public Use
  Company Number: US-PFIZER INC-2020265888

PATIENT
  Age: 79 Year
  Sex: Female

DRUGS (1)
  1. METRONIDAZOLE. [Suspect]
     Active Substance: METRONIDAZOLE
     Dosage: UNK

REACTIONS (5)
  - Drug intolerance [Unknown]
  - Rash [Unknown]
  - Abdominal discomfort [Unknown]
  - Abdominal distension [Unknown]
  - Drug hypersensitivity [Unknown]
